FAERS Safety Report 14599569 (Version 1)
Quarter: 2018Q1

REPORT INFORMATION
  Report Type: Spontaneous
  Country: US (occurrence: US)
  Receive Date: 20180304
  Receipt Date: 20180304
  Transmission Date: 20180509
  Serious: No
  Sender: FDA-Public Use
  Company Number: None

PATIENT
  Sex: Female

DRUGS (1)
  1. ANBESOL MAXIMUM STRENGTH [Suspect]
     Active Substance: BENZOCAINE
     Indication: TOOTH DISORDER
     Dosage: ?          QUANTITY:350 DROP(S);?
     Route: 048

REACTIONS (5)
  - Liver injury [None]
  - Peripheral swelling [None]
  - Tooth disorder [None]
  - Drug ineffective [None]
  - Pain [None]

NARRATIVE: CASE EVENT DATE: 20160510
